FAERS Safety Report 25463446 (Version 1)
Quarter: 2025Q2

REPORT INFORMATION
  Report Type: Spontaneous
  Country: US (occurrence: US)
  Receive Date: 20250620
  Receipt Date: 20250620
  Transmission Date: 20250717
  Serious: Yes (Hospitalization)
  Sender: LEXICON PHARMACEUTICALS
  Company Number: US-LEX-000768

PATIENT
  Age: 55 Year
  Sex: Female

DRUGS (9)
  1. INPEFA [Suspect]
     Active Substance: SOTAGLIFLOZIN
     Indication: Dilated cardiomyopathy
     Route: 048
     Dates: start: 20240824
  2. DIPHENHYDRAMINE [Concomitant]
     Active Substance: DIPHENHYDRAMINE
  3. SEMAGLUTIDE [Concomitant]
     Active Substance: SEMAGLUTIDE
  4. SULFAMETHOXAZOLE\TRIMETHOPRIM [Concomitant]
     Active Substance: SULFAMETHOXAZOLE\TRIMETHOPRIM
  5. AMPICILLIN [Concomitant]
     Active Substance: AMPICILLIN
  6. TRAMADOL [Concomitant]
     Active Substance: TRAMADOL
  7. PENICILLIN [Concomitant]
     Active Substance: PENICILLIN
  8. CLINDAMYCIN [Concomitant]
     Active Substance: CLINDAMYCIN
  9. SPIRONOLACTONE [Concomitant]
     Active Substance: SPIRONOLACTONE

REACTIONS (1)
  - Fluid retention [Unknown]
